FAERS Safety Report 10345933 (Version 1)
Quarter: 2014Q3

REPORT INFORMATION
  Report Type: Spontaneous
  Country: US (occurrence: US)
  Receive Date: 20140728
  Receipt Date: 20140728
  Transmission Date: 20150326
  Serious: No
  Sender: FDA-Public Use
  Company Number: US-TEVA-497375USA

PATIENT
  Age: 25 Year
  Sex: Female
  Weight: 68.1 kg

DRUGS (2)
  1. SYNTHROID [Concomitant]
     Active Substance: LEVOTHYROXINE SODIUM
     Indication: HYPOTHYROIDISM
  2. PARAGARD T380A [Suspect]
     Active Substance: COPPER
     Indication: CONTRACEPTION
     Route: 015
     Dates: start: 20131006, end: 20140715

REACTIONS (2)
  - Exposure during pregnancy [Unknown]
  - Pregnancy with contraceptive device [Not Recovered/Not Resolved]

NARRATIVE: CASE EVENT DATE: 20140704
